FAERS Safety Report 26055105 (Version 1)
Quarter: 2025Q4

REPORT INFORMATION
  Report Type: Report from Study
  Country: US (occurrence: US)
  Receive Date: 20251117
  Receipt Date: 20251117
  Transmission Date: 20260118
  Serious: No
  Sender: MALLINCKRODT
  Company Number: US-MALLINCKRODT-MNK202506735

PATIENT
  Age: 69 Year
  Sex: Male

DRUGS (1)
  1. CORTICOTROPIN [Suspect]
     Active Substance: CORTICOTROPIN
     Indication: Ulcerative keratitis
     Dosage: 80 UNITS
     Route: 058
     Dates: start: 20251013

REACTIONS (8)
  - Dizziness [Unknown]
  - Contusion [Unknown]
  - Pollakiuria [Unknown]
  - Night sweats [Unknown]
  - Insomnia [Unknown]
  - Headache [Unknown]
  - Fluid retention [Unknown]
  - Peripheral swelling [Unknown]

NARRATIVE: CASE EVENT DATE: 20251001
